FAERS Safety Report 9602321 (Version 1)
Quarter: 2013Q4

REPORT INFORMATION
  Report Type: Spontaneous
  Country: US (occurrence: US)
  Receive Date: 20131007
  Receipt Date: 20131007
  Transmission Date: 20140711
  Serious: No
  Sender: FDA-Public Use
  Company Number: US-GLAXOSMITHKLINE-A1029286A

PATIENT
  Age: 50 Year
  Sex: Female

DRUGS (2)
  1. BENLYSTA [Suspect]
     Indication: PRODUCT USED FOR UNKNOWN INDICATION
     Dosage: 600MG CYCLIC
     Route: 042
     Dates: start: 201302, end: 201303
  2. ARAVA [Suspect]

REACTIONS (3)
  - Diarrhoea [Recovered/Resolved]
  - Incontinence [Recovered/Resolved]
  - Insomnia [Recovered/Resolved]
